FAERS Safety Report 20304115 (Version 5)
Quarter: 2022Q1

REPORT INFORMATION
  Report Type: Spontaneous
  Country: ES (occurrence: ES)
  Receive Date: 20220106
  Receipt Date: 20220208
  Transmission Date: 20220424
  Serious: Yes (Hospitalization, Other)
  Sender: FDA-Public Use
  Company Number: ES-NOVARTISPH-NVSC2022ES000978

PATIENT
  Age: 53 Year
  Sex: Female

DRUGS (14)
  1. KISQALI [Suspect]
     Active Substance: RIBOCICLIB
     Indication: Hormone receptor negative HER2 positive breast cancer
     Dosage: 400 MG
     Route: 065
     Dates: start: 20211202
  2. KISQALI [Suspect]
     Active Substance: RIBOCICLIB
     Indication: Breast cancer
     Dosage: 200 MG, QD
     Route: 065
  3. KISQALI [Suspect]
     Active Substance: RIBOCICLIB
     Dosage: 600 MG,QD
     Route: 065
     Dates: start: 20211104
  4. TAMOXIFEN [Suspect]
     Active Substance: TAMOXIFEN
     Indication: Product used for unknown indication
     Dosage: UNK
     Route: 065
     Dates: start: 20200201, end: 20211031
  5. ESCITALOPRAM [Concomitant]
     Active Substance: ESCITALOPRAM OXALATE
     Indication: Depression
     Dosage: 30 MG, QD (FOR 2 YEARS)
     Route: 065
  6. IBUPROFEN [Concomitant]
     Active Substance: IBUPROFEN
     Indication: Antiinflammatory therapy
     Dosage: 600 MG, BID (FOLLOWING A DIFFICULT MASTECTOMY)
     Route: 065
  7. IBUPROFEN [Concomitant]
     Active Substance: IBUPROFEN
     Indication: Analgesic therapy
  8. GABAPENTIN [Concomitant]
     Active Substance: GABAPENTIN
     Indication: Neuralgia
     Dosage: 300 MG, BID
     Route: 065
     Dates: start: 20211101
  9. CARBAMAZEPINE [Concomitant]
     Active Substance: CARBAMAZEPINE
     Indication: Mastectomy
     Dosage: UNK (BECAUSE OF THE DIFFICULT MASTECTOMY AND RECONSTRUCTION)
     Route: 065
  10. VITAMIN D [Concomitant]
     Active Substance: VITAMIN D NOS
     Indication: Vitamin D deficiency
     Dosage: UNK
     Route: 065
  11. CONCERTA [Concomitant]
     Active Substance: METHYLPHENIDATE HYDROCHLORIDE
     Indication: Attention deficit hyperactivity disorder
     Dosage: 36 MG, QD (FOR 2 YEARS)
     Route: 065
  12. DEPRAX [Concomitant]
     Indication: Product used for unknown indication
     Dosage: 100 MG (BEFORE SLEEP)
     Route: 065
     Dates: start: 201909
  13. LORAZEPAM [Concomitant]
     Active Substance: LORAZEPAM
     Indication: Product used for unknown indication
     Dosage: 1 MG (BEFORE SLEEP)
     Route: 065
     Dates: start: 201909
  14. LYRICA [Concomitant]
     Active Substance: PREGABALIN
     Indication: Product used for unknown indication
     Dosage: (BECAUSE OF THE DIFFICULT MASTECTOMY AND RECONSTRUCTION)
     Route: 065

REACTIONS (7)
  - Blood test abnormal [Recovering/Resolving]
  - Circulatory collapse [Unknown]
  - Discomfort [Recovered/Resolved]
  - Ocular hyperaemia [Unknown]
  - Hyperacusis [Unknown]
  - Blood pressure fluctuation [Recovered/Resolved]
  - Hypertension [Unknown]

NARRATIVE: CASE EVENT DATE: 20211227
